FAERS Safety Report 9026912 (Version 3)
Quarter: 2013Q1

REPORT INFORMATION
  Report Type: Spontaneous
  Country: US (occurrence: US)
  Receive Date: 20130123
  Receipt Date: 20130207
  Transmission Date: 20140127
  Serious: No
  Sender: FDA-Public Use
  Company Number: US-PFIZER INC-2013022644

PATIENT
  Age: 65 Year
  Sex: Female
  Weight: 65.31 kg

DRUGS (2)
  1. REVATIO [Suspect]
     Indication: PULMONARY ARTERIAL HYPERTENSION
     Dosage: 20 MG, 2X/DAY
     Route: 048
     Dates: start: 2012
  2. BABY ASPIRIN [Concomitant]
     Dosage: 81 MG, 4X/DAY

REACTIONS (1)
  - Rhinitis [Unknown]
